FAERS Safety Report 12140574 (Version 2)
Quarter: 2016Q1

REPORT INFORMATION
  Report Type: Spontaneous
  Country: US (occurrence: US)
  Receive Date: 20160303
  Receipt Date: 20160324
  Transmission Date: 20160526
  Serious: No
  Sender: FDA-Public Use
  Company Number: US-GLAXOSMITHKLINE-US2016GSK029870

PATIENT
  Sex: Female

DRUGS (2)
  1. TANZEUM [Suspect]
     Active Substance: ALBIGLUTIDE
     Indication: TYPE 2 DIABETES MELLITUS
     Dosage: 30 MG, WE
     Route: 042
     Dates: start: 201509
  2. TANZEUM [Suspect]
     Active Substance: ALBIGLUTIDE
     Dosage: UNK, U

REACTIONS (6)
  - Injection site pruritus [Unknown]
  - Injection site irritation [Unknown]
  - Injection site erythema [Unknown]
  - Adverse drug reaction [Unknown]
  - Injection site swelling [Unknown]
  - Lack of injection site rotation [Unknown]
